FAERS Safety Report 8964476 (Version 1)
Quarter: 2012Q4

REPORT INFORMATION
  Report Type: 
  Country: US (occurrence: US)
  Receive Date: 20121214
  Receipt Date: 20121214
  Transmission Date: 20130627
  Serious: No
  Sender: FDA-Public Use
  Company Number: US-GLAXOSMITHKLINE-A0999182A

PATIENT
  Age: 60 Year
  Sex: Male

DRUGS (9)
  1. AVODART [Suspect]
     Indication: BENIGN PROSTATIC HYPERPLASIA
     Dosage: .5MG Per day
     Route: 048
     Dates: start: 20120915, end: 20121023
  2. AMIODARONE [Concomitant]
  3. BABY ASPIRIN [Concomitant]
  4. COREG [Concomitant]
  5. HYDROCHLOROTHIAZIDE [Concomitant]
  6. LISINOPRIL [Concomitant]
  7. FLOMAX [Concomitant]
  8. COUMADIN [Concomitant]
  9. UNKNOWN MEDICATION [Concomitant]
     Indication: VENTRICULAR EXTRASYSTOLES

REACTIONS (1)
  - Atrial fibrillation [Not Recovered/Not Resolved]
